FAERS Safety Report 7821956-0 (Version None)
Quarter: 2011Q4

REPORT INFORMATION
  Report Type: 
  Country: None (occurrence: None)
  Receive Date: 20111018
  Receipt Date: 20101217
  Transmission Date: 20120403
  Serious: No
  Sender: FDA-Public Use
  Company Number: US-ASTRAZENECA-2010SE47249

PATIENT
  Age: 30239 Day
  Sex: Male
  Weight: 74.8 kg

DRUGS (4)
  1. SYMBICORT [Suspect]
     Indication: CHRONIC OBSTRUCTIVE PULMONARY DISEASE
     Dosage: 80/4.5 UG, BID
     Route: 055
     Dates: start: 20100901
  2. SYNTHROID [Concomitant]
     Indication: HYPOTHYROIDISM
     Dates: start: 20100101
  3. CYMBALTA [Concomitant]
     Indication: DEPRESSION
     Dates: start: 20100101
  4. LISINOPRIL/DIURETIC COMBINATION [Concomitant]
     Indication: HYPERTENSION
     Dosage: DAILY
     Dates: start: 20090101

REACTIONS (5)
  - DIZZINESS EXERTIONAL [None]
  - DRY MOUTH [None]
  - LUNG HYPERINFLATION [None]
  - DRUG DOSE OMISSION [None]
  - DYSPNOEA [None]
